FAERS Safety Report 24171819 (Version 2)
Quarter: 2024Q3

REPORT INFORMATION
  Report Type: Spontaneous
  Country: JP (occurrence: JP)
  Receive Date: 20240805
  Receipt Date: 20240810
  Transmission Date: 20241016
  Serious: Yes (Hospitalization)
  Sender: ABBVIE
  Company Number: JP-ABBVIE-5864884

PATIENT
  Age: 10 Year
  Sex: Female

DRUGS (1)
  1. RINVOQ [Suspect]
     Active Substance: UPADACITINIB
     Indication: Colitis ulcerative
     Dosage: FORM STRENGTH: 45 MG
     Route: 048

REACTIONS (3)
  - Colitis ulcerative [Recovering/Resolving]
  - Therapeutic product effect incomplete [Recovering/Resolving]
  - Haematochezia [Recovering/Resolving]
